FAERS Safety Report 19417714 (Version 1)
Quarter: 2021Q2

REPORT INFORMATION
  Report Type: Spontaneous
  Country: US (occurrence: US)
  Receive Date: 20210615
  Receipt Date: 20210615
  Transmission Date: 20210717
  Serious: Yes (Other)
  Sender: FDA-Public Use
  Company Number: None

PATIENT
  Age: 81 Year
  Sex: Female
  Weight: 74.25 kg

DRUGS (15)
  1. ALBUTEROL SULFATE. [Concomitant]
     Active Substance: ALBUTEROL SULFATE
  2. NOVOLOG [Concomitant]
     Active Substance: INSULIN ASPART
  3. EVEROLIMUS. [Suspect]
     Active Substance: EVEROLIMUS
     Indication: BREAST CANCER FEMALE
     Route: 048
     Dates: start: 20210611
  4. METHANAMINE [Concomitant]
  5. IRON [Concomitant]
     Active Substance: IRON
  6. BENZONATATE. [Concomitant]
     Active Substance: BENZONATATE
  7. VITAMIN D3 [Concomitant]
     Active Substance: CHOLECALCIFEROL
  8. XGEVA, [Concomitant]
  9. ASPIRIN. [Concomitant]
     Active Substance: ASPIRIN
  10. LETROZOLE. [Concomitant]
     Active Substance: LETROZOLE
  11. TRIMETHOPRIM. [Concomitant]
     Active Substance: TRIMETHOPRIM
  12. BASAGLAR [Concomitant]
     Active Substance: INSULIN GLARGINE
  13. BUDESONIDE. [Concomitant]
     Active Substance: BUDESONIDE
  14. MOBIC [Concomitant]
     Active Substance: MELOXICAM
  15. DEXAMETHASONE. [Concomitant]
     Active Substance: DEXAMETHASONE

REACTIONS (1)
  - Nausea [None]

NARRATIVE: CASE EVENT DATE: 20210615
